FAERS Safety Report 4411001-1 (Version None)
Quarter: 2004Q3

REPORT INFORMATION
  Report Type: 
  Country: None (occurrence: None)
  Receive Date: 20040729
  Receipt Date: 20040723
  Transmission Date: 20050211
  Serious: Yes (Other)
  Sender: FDA-Public Use
  Company Number: US-BRISTOL-MYERS SQUIBB COMPANY-12650222

PATIENT
  Age: 70 Year
  Sex: Male

DRUGS (1)
  1. GATIFLOXACIN IV [Suspect]
     Indication: PNEUMONIA
     Route: 042

REACTIONS (1)
  - HYPERGLYCAEMIA [None]
